FAERS Safety Report 5399682-X (Version None)
Quarter: 2007Q3

REPORT INFORMATION
  Report Type: 
  Country: None (occurrence: None)
  Receive Date: 20070727
  Receipt Date: 20070716
  Transmission Date: 20080115
  Serious: Yes (Other)
  Sender: FDA-Public Use
  Company Number: GB-BAUSCH-2007BL002374

PATIENT
  Age: 79 Year
  Sex: Male

DRUGS (4)
  1. MINIMS TROPICAMIDE 1.0% [Suspect]
     Route: 061
     Dates: start: 20070625, end: 20070625
  2. MINIMS PHENYLEPHRINE HYDROCHLORIDE 2.5% [Suspect]
     Route: 061
     Dates: start: 20070625, end: 20070625
  3. COSOPT [Concomitant]
     Indication: GLAUCOMA
     Route: 061
  4. OCUVITE [Concomitant]
     Indication: MACULAR DEGENERATION
     Route: 048

REACTIONS (2)
  - CELLULITIS ORBITAL [None]
  - CONJUNCTIVAL HAEMORRHAGE [None]
